FAERS Safety Report 7437878-3 (Version None)
Quarter: 2011Q2

REPORT INFORMATION
  Report Type: 
  Country: None (occurrence: None)
  Receive Date: 20110426
  Receipt Date: 20110418
  Transmission Date: 20111010
  Serious: Yes (Hospitalization)
  Sender: FDA-Public Use
  Company Number: B0673082A

PATIENT
  Sex: Male
  Weight: 62 kg

DRUGS (7)
  1. SPIRIVA [Concomitant]
     Indication: CHRONIC OBSTRUCTIVE PULMONARY DISEASE
     Dosage: 1IUAX PER DAY
     Route: 055
     Dates: start: 20100405
  2. AVOLVE [Concomitant]
     Dosage: .5MG PER DAY
     Route: 048
     Dates: start: 20100610
  3. KETOPROFEN [Concomitant]
     Dosage: 40MG PER DAY
     Route: 062
  4. NORVASC [Concomitant]
     Dosage: 5MG PER DAY
     Route: 048
  5. MEPTIN [Concomitant]
     Indication: CHRONIC OBSTRUCTIVE PULMONARY DISEASE
     Route: 055
  6. MUCODYNE [Concomitant]
     Indication: CHRONIC OBSTRUCTIVE PULMONARY DISEASE
     Dosage: 1500MG PER DAY
     Route: 048
     Dates: start: 20100218, end: 20100324
  7. SERETIDE [Suspect]
     Indication: CHRONIC OBSTRUCTIVE PULMONARY DISEASE
     Dosage: 500MCG PER DAY
     Route: 055
     Dates: start: 20100118, end: 20100511

REACTIONS (2)
  - DYSPNOEA [None]
  - INTERSTITIAL LUNG DISEASE [None]
